FAERS Safety Report 8342934-1 (Version None)
Quarter: 2012Q2

REPORT INFORMATION
  Report Type: 
  Country: None (occurrence: None)
  Receive Date: 20120504
  Receipt Date: 20120504
  Transmission Date: 20120825
  Serious: Yes (Other)
  Sender: FDA-Public Use
  Company Number: None

PATIENT
  Age: 61 Year
  Sex: Female
  Weight: 58.5 kg

DRUGS (3)
  1. CENTRUM SILVER (MULTIMINERALS, MULTIVITAMINS) TABLET [Suspect]
     Dosage: ORAL
     Route: 048
     Dates: start: 20020101, end: 20120101
  2. CENTRUM SILVER (MULTIMINERALS, MULTIVITAMINS) CHEWABLE TABLETS [Suspect]
     Indication: RECTAL HAEMORRHAGE
     Dosage: DAILY
     Dates: start: 20120201
  3. CENTRUM SILVER (MULTIMINERALS, MULTIVITAMINS) CHEWABLE TABLETS [Suspect]
     Indication: COLITIS ULCERATIVE
     Dosage: DAILY
     Dates: start: 20120201

REACTIONS (7)
  - AGITATION [None]
  - ABDOMINAL DISTENSION [None]
  - PAIN [None]
  - DRUG TOLERANCE [None]
  - HAEMORRHAGE [None]
  - COLITIS ULCERATIVE [None]
  - ABDOMINAL PAIN UPPER [None]
